FAERS Safety Report 16607175 (Version 1)
Quarter: 2019Q3

REPORT INFORMATION
  Report Type: Spontaneous
  Country: JP (occurrence: JP)
  Receive Date: 20190722
  Receipt Date: 20190722
  Transmission Date: 20191004
  Serious: Yes (Hospitalization)
  Sender: FDA-Public Use
  Company Number: JP-TEVA-2019-JP-004337J

PATIENT
  Age: 56 Year
  Sex: Female

DRUGS (1)
  1. PREDNISOLONE TABLETS 5MG [Suspect]
     Active Substance: PREDNISOLONE
     Indication: PRODUCT USED FOR UNKNOWN INDICATION
     Route: 065
     Dates: start: 201501

REACTIONS (2)
  - Duodenal ulcer haemorrhage [Unknown]
  - Gastric ulcer haemorrhage [Unknown]
